FAERS Safety Report 8546970 (Version 3)
Quarter: 2014Q1

REPORT INFORMATION
  Report Type: Spontaneous
  Country: US (occurrence: None)
  Receive Date: 20120315
  Receipt Date: 20130724
  Transmission Date: 20141002
  Serious: No
  Sender: FDA-Public Use
  Company Number: PHHY2011US25802

PATIENT
  Age: 33 Year
  Sex: Female

DRUGS (1)
  1. GILENYA (FTY) CAPSULE, 0.5MG [Suspect]
     Indication: RELAPSING-REMITTING MULTIPLE SCLEROSIS
     Dosage: 0.5 MG, QD, ORAL
     Route: 048
     Dates: start: 20110318, end: 20120701

REACTIONS (4)
  - Dry mouth [None]
  - Fatigue [None]
  - Maternal exposure during pregnancy [None]
  - Exposure during pregnancy [None]
